FAERS Safety Report 10646924 (Version 2)
Quarter: 2015Q1

REPORT INFORMATION
  Report Type: Report from Study
  Country: US (occurrence: US)
  Receive Date: 20141211
  Receipt Date: 20150112
  Transmission Date: 20150720
  Serious: Yes (Hospitalization)
  Sender: FDA-Public Use
  Company Number: US-GILEAD-2014-0126234

PATIENT
  Age: 16 Year
  Sex: Female

DRUGS (1)
  1. AZTREONAM LYSINE [Suspect]
     Active Substance: AZTREONAM LYSINE
     Indication: RESPIRATORY DISORDER
     Dosage: 75 MG, UNK
     Route: 055
     Dates: start: 20141126

REACTIONS (3)
  - Sputum discoloured [Unknown]
  - Oxygen saturation decreased [Unknown]
  - Malaise [Unknown]
